FAERS Safety Report 21600889 (Version 1)
Quarter: 2022Q4

REPORT INFORMATION
  Report Type: Spontaneous
  Country: CN (occurrence: CN)
  Receive Date: 20221116
  Receipt Date: 20221116
  Transmission Date: 20230112
  Serious: Yes (Life-Threatening, Hospitalization, Other)
  Sender: FDA-Public Use
  Company Number: CN-SUN PHARMACEUTICAL INDUSTRIES LTD-2022R1-363829

PATIENT
  Age: 38 Year
  Sex: Female

DRUGS (1)
  1. AMITRIPTYLINE [Suspect]
     Active Substance: AMITRIPTYLINE
     Indication: Depression
     Dosage: UNK
     Route: 065

REACTIONS (12)
  - Intentional overdose [Unknown]
  - Heart rate increased [Unknown]
  - Blood pressure decreased [Unknown]
  - Respiratory rate increased [Unknown]
  - Coma scale abnormal [Unknown]
  - Body temperature increased [Unknown]
  - Oxygen saturation decreased [Unknown]
  - Septic shock [Unknown]
  - Pneumonia [Unknown]
  - Brain oedema [Unknown]
  - Klebsiella infection [Unknown]
  - Guillain-Barre syndrome [Unknown]
